FAERS Safety Report 5735902-7 (Version None)
Quarter: 2008Q2

REPORT INFORMATION
  Report Type: 
  Country: None (occurrence: None)
  Receive Date: 20080509
  Receipt Date: 20080509
  Transmission Date: 20081010
  Serious: Yes (Other)
  Sender: FDA-Public Use
  Company Number: None

PATIENT
  Age: 42 Year
  Sex: Male
  Weight: 77.1115 kg

DRUGS (2)
  1. AZMACORT [Suspect]
     Indication: LUNG DISORDER
     Dosage: 2 INHALATIONS ONCE PER DAY PO
     Route: 048
     Dates: start: 20080213, end: 20080223
  2. AZMACORT [Suspect]
     Indication: PAIN
     Dosage: 2 INHALATIONS ONCE PER DAY PO
     Route: 048
     Dates: start: 20080213, end: 20080223

REACTIONS (3)
  - CHEST PAIN [None]
  - LUNG INFECTION [None]
  - PLEURISY [None]
